FAERS Safety Report 6860011-3 (Version None)
Quarter: 2010Q3

REPORT INFORMATION
  Report Type: 
  Country: None (occurrence: None)
  Receive Date: 20100720
  Receipt Date: 20100709
  Transmission Date: 20110219
  Serious: Yes (Hospitalization)
  Sender: FDA-Public Use
  Company Number: DE-NOVOPROD-306798

PATIENT
  Age: 70 Year
  Sex: Female
  Weight: 45 kg

DRUGS (15)
  1. NOVONORM [Suspect]
     Indication: TYPE 2 DIABETES MELLITUS
     Dosage: 2 MG, TID
     Route: 048
     Dates: start: 20070101
  2. LEVODOPA BENSERAZIDE HYDROCHLO [Concomitant]
     Indication: RESTLESS LEGS SYNDROME
     Dosage: 1 DF, QD
     Route: 048
     Dates: start: 20060101
  3. CARVEDILOL 1A PHARMA [Concomitant]
     Indication: HYPERTENSION
     Dosage: 12.5 MG, QD
     Route: 048
     Dates: start: 20060101
  4. BLOPRESS [Concomitant]
     Indication: HYPERTENSION
     Dosage: 8 MG, QD
     Route: 048
     Dates: start: 20070101
  5. OMEPRAZOL 1A PHARMA GMBH [Concomitant]
     Indication: PROPHYLAXIS AGAINST GASTROINTESTINAL ULCER
     Dosage: 40 MG, QD
     Route: 048
     Dates: start: 20050101
  6. SIMVASTATIN [Concomitant]
     Indication: DYSLIPIDAEMIA
     Dosage: 10 MG, QD
     Route: 048
     Dates: start: 20050101
  7. ACTONEL [Concomitant]
     Indication: OSTEOPOROSIS
     Dosage: 35 MG, QD
     Route: 048
     Dates: start: 20080101
  8. FENTANYL HEXAL [Concomitant]
     Indication: PAIN
     Dosage: 50UG/HOUR
     Route: 062
     Dates: start: 20090601, end: 20090727
  9. DREISAVIT                          /00844801/ [Concomitant]
     Indication: VITAMIN SUPPLEMENTATION
     Dosage: 1 DF, QD
     Dates: start: 20050101, end: 20090726
  10. FOSRENOL [Concomitant]
     Indication: RENAL FAILURE
     Dosage: 1000 MG, BID
     Dates: start: 20070601
  11. DIGITOXIN [Concomitant]
     Indication: CORONARY ARTERY DISEASE
     Dosage: .07 MG, QD
     Route: 048
     Dates: start: 20070601
  12. MCP 1A PHARMA [Concomitant]
     Indication: NAUSEA
     Dosage: 3X10 MG IG REQUIRED
     Route: 048
     Dates: start: 20050101, end: 20090731
  13. ASPIRIN [Concomitant]
     Indication: CORONARY ARTERY DISEASE
     Dosage: 100 MG, QD
     Dates: start: 20050101
  14. METAMIZOLE [Concomitant]
     Indication: PAIN
     Dosage: 4000 MG, QD
     Route: 048
     Dates: start: 20090601
  15. MIMPARA                            /01735301/ [Concomitant]
     Indication: HYPERPARATHYROIDISM SECONDARY
     Dosage: 270 MG/ WEEK
     Route: 048
     Dates: start: 20060101

REACTIONS (4)
  - INFECTION [None]
  - OVERDOSE [None]
  - SOMNOLENCE [None]
  - TRANSAMINASES INCREASED [None]
